FAERS Safety Report 8516594-0 (Version None)
Quarter: 2012Q3

REPORT INFORMATION
  Report Type: 
  Country: None (occurrence: None)
  Receive Date: 20120712
  Receipt Date: 20120712
  Transmission Date: 20120928
  Serious: Yes (Other)
  Sender: FDA-Public Use
  Company Number: None

PATIENT
  Sex: Female

DRUGS (1)
  1. BETAMETHASONE [Suspect]
     Indication: LICHENOID KERATOSIS
     Dosage: 15MG .1% TWICE A DAY TOP
     Route: 061

REACTIONS (4)
  - ASTHENIA [None]
  - HEADACHE [None]
  - MUSCULAR WEAKNESS [None]
  - ARTHRALGIA [None]
